FAERS Safety Report 4634468-2 (Version None)
Quarter: 2005Q2

REPORT INFORMATION
  Report Type: 
  Country: None (occurrence: None)
  Receive Date: 20050413
  Receipt Date: 20050214
  Transmission Date: 20051028
  Serious: Yes (Disabling)
  Sender: FDA-Public Use
  Company Number: DE-MERCK-0502DEU00100

PATIENT
  Age: 63 Year
  Sex: Female
  Weight: 75 kg

DRUGS (7)
  1. ZETIA [Suspect]
     Indication: HYPERCHOLESTEROLAEMIA
     Route: 048
     Dates: start: 20050119, end: 20050130
  2. CANDESARTAN CILEXETIL [Concomitant]
     Route: 048
  3. TORSEMIDE [Concomitant]
     Route: 048
  4. METOPROLOL SUCCINATE [Concomitant]
     Route: 048
  5. OMEPRAZOLE [Concomitant]
     Route: 048
     Dates: start: 20010101
  6. CHOLECALCIFEROL [Concomitant]
     Route: 048
  7. CYANOCOBALAMIN [Concomitant]
     Route: 051

REACTIONS (4)
  - EYE IRRITATION [None]
  - GOUT [None]
  - NEURALGIA [None]
  - VISUAL DISTURBANCE [None]
